FAERS Safety Report 5472653-0 (Version None)
Quarter: 2007Q4

REPORT INFORMATION
  Report Type: 
  Country: None (occurrence: None)
  Receive Date: 20071001
  Receipt Date: 20060823
  Transmission Date: 20080405
  Serious: No
  Sender: FDA-Public Use
  Company Number: US-ASTRAZENECA-2006UW16756

PATIENT
  Age: 18688 Day
  Sex: Female
  Weight: 56.2 kg

DRUGS (4)
  1. ARIMIDEX [Suspect]
     Indication: BREAST CANCER FEMALE
     Route: 048
     Dates: start: 20060816
  2. ARIMIDEX [Suspect]
     Indication: BREAST CANCER
     Route: 048
     Dates: start: 20060816
  3. ACIPHEX [Concomitant]
  4. TRAZODONE HCL [Concomitant]

REACTIONS (5)
  - AFFECT LABILITY [None]
  - FEELING ABNORMAL [None]
  - FEELING HOT [None]
  - GINGIVAL BLEEDING [None]
  - SLUGGISHNESS [None]
